FAERS Safety Report 23853055 (Version 1)
Quarter: 2024Q2

REPORT INFORMATION
  Report Type: Spontaneous
  Country: GB (occurrence: GB)
  Receive Date: 20240514
  Receipt Date: 20240514
  Transmission Date: 20240716
  Serious: Yes (Other)
  Sender: FDA-Public Use
  Company Number: None

PATIENT
  Age: 70 Year
  Sex: Female
  Weight: 95 kg

DRUGS (20)
  1. AMLODIPINE [Suspect]
     Active Substance: AMLODIPINE BESYLATE
     Route: 065
     Dates: start: 20240306
  2. ZEROCREAM [Concomitant]
     Dates: start: 20220221, end: 20240429
  3. NAPROXEN [Concomitant]
     Active Substance: NAPROXEN
     Dosage: TIME INTERVAL: AS NECESSARY: AFTER FOOD PRN
     Dates: start: 20240227, end: 20240410
  4. CARBOMER [Concomitant]
     Active Substance: CARBOMER
     Dosage: AS DIRECTED
     Dates: start: 20060323, end: 20240429
  5. ASPIRIN [Concomitant]
     Active Substance: ASPIRIN
     Dates: start: 20180130, end: 20240429
  6. CALCIUM CARBONATE [Concomitant]
     Active Substance: CALCIUM CARBONATE
     Dosage: AS DIRECTED BY ST BARTS 13.3.08.
     Dates: start: 20080507, end: 20240429
  7. RAMIPRIL [Concomitant]
     Active Substance: RAMIPRIL
     Dates: start: 20111020, end: 20240429
  8. CETIRIZINE [Concomitant]
     Active Substance: CETIRIZINE HYDROCHLORIDE
     Dates: start: 20060427, end: 20240429
  9. CLARITHROMYCIN [Concomitant]
     Active Substance: CLARITHROMYCIN
     Dates: start: 20240227, end: 20240327
  10. ATORVASTATIN [Concomitant]
     Active Substance: ATORVASTATIN
     Dates: start: 20141113, end: 20240429
  11. ERGOCALCIFEROL [Concomitant]
     Active Substance: ERGOCALCIFEROL
     Dosage: 1 M(=7.5 MG) TO GIVE INTRAMUSCULARLY EVERY 4 MO...
     Route: 030
     Dates: start: 20080507, end: 20240429
  12. LANSOPRAZOLE [Concomitant]
     Active Substance: LANSOPRAZOLE
     Dates: start: 20110127, end: 20240429
  13. ALLOPURINOL [Concomitant]
     Active Substance: ALLOPURINOL
     Dates: start: 20230604, end: 20240429
  14. HYDROXOCOBALAMIN [Concomitant]
     Active Substance: HYDROXOCOBALAMIN
     Dates: start: 20210720, end: 20240429
  15. BISACODYL [Concomitant]
     Active Substance: BISACODYL
     Dosage: 2-4 AT NIGHT
     Dates: start: 20141016, end: 20240429
  16. HYDROMOL [Concomitant]
     Dosage: TIME INTERVAL: 0.33333333 DAYS: EMOLLIENT
     Dates: start: 20071108, end: 20240429
  17. AMITRIPTYLINE HYDROCHLORIDE [Concomitant]
     Active Substance: AMITRIPTYLINE HYDROCHLORIDE
     Dosage: 1-2 EACH EVENING AT 7PM
     Dates: start: 20221130, end: 20240429
  18. FOLIC ACID [Concomitant]
     Active Substance: FOLIC ACID
     Dates: start: 20210720, end: 20240429
  19. INDAPAMIDE [Concomitant]
     Active Substance: INDAPAMIDE
     Dosage: EACH MORNING
     Dates: start: 20121108, end: 20240429
  20. METFORMIN [Concomitant]
     Active Substance: METFORMIN HYDROCHLORIDE
     Dates: start: 20141113, end: 20240429

REACTIONS (1)
  - Joint swelling [Recovered/Resolved]
